FAERS Safety Report 7769813-2 (Version None)
Quarter: 2011Q3

REPORT INFORMATION
  Report Type: 
  Country: None (occurrence: None)
  Receive Date: 20110922
  Receipt Date: 20110329
  Transmission Date: 20111222
  Serious: No
  Sender: FDA-Public Use
  Company Number: US-ASTRAZENECA-2011SE17687

PATIENT
  Age: 34 Year
  Sex: Male
  Weight: 76.2 kg

DRUGS (3)
  1. SEROQUEL [Suspect]
     Indication: BIPOLAR DISORDER
     Route: 048
     Dates: start: 20080101
  2. SEROQUEL [Suspect]
     Route: 048
  3. LAMICTAL [Concomitant]
     Route: 065

REACTIONS (6)
  - INSOMNIA [None]
  - NIGHTMARE [None]
  - ASTHENIA [None]
  - DRUG DOSE OMISSION [None]
  - SOMNOLENCE [None]
  - ABNORMAL DREAMS [None]
